FAERS Safety Report 12290283 (Version 1)
Quarter: 2016Q2

REPORT INFORMATION
  Report Type: Spontaneous
  Country: US (occurrence: None)
  Receive Date: 20160420
  Receipt Date: 20160420
  Transmission Date: 20160815
  Serious: Yes (Hospitalization)
  Sender: FDA-Public Use
  Company Number: None

PATIENT
  Age: 68 Year
  Sex: Female
  Weight: 87.09 kg

DRUGS (8)
  1. DEXAMETHASONE. [Concomitant]
     Active Substance: DEXAMETHASONE
  2. NAROPIN [Concomitant]
     Active Substance: ROPIVACAINE HYDROCHLORIDE
  3. VERSED [Concomitant]
     Active Substance: MIDAZOLAM HYDROCHLORIDE
  4. TRANEXAMIC ACID. [Concomitant]
     Active Substance: TRANEXAMIC ACID
  5. EPHEDRINE. [Concomitant]
     Active Substance: EPHEDRINE
  6. LIDOCAINE. [Concomitant]
     Active Substance: LIDOCAINE
  7. DURAMORPH [Suspect]
     Active Substance: MORPHINE SULFATE
     Indication: ANAESTHESIA PROCEDURE
     Dosage: 0.15 MG X1 EPIDURAL
     Dates: start: 20160414, end: 20160414
  8. FENTANYL. [Concomitant]
     Active Substance: FENTANYL

REACTIONS (1)
  - Hypothermia [None]

NARRATIVE: CASE EVENT DATE: 20160414
